FAERS Safety Report 6371237-X (Version None)
Quarter: 2009Q3

REPORT INFORMATION
  Report Type: 
  Country: None (occurrence: None)
  Receive Date: 20090923
  Receipt Date: 20070802
  Transmission Date: 20100115
  Serious: Yes (Other)
  Sender: FDA-Public Use
  Company Number: US-ASTRAZENECA-2006UW27641

PATIENT
  Sex: Female
  Weight: 61.2 kg

DRUGS (18)
  1. SEROQUEL [Suspect]
     Indication: AGITATION
     Dosage: 25-550 MG
     Route: 048
     Dates: start: 20030710, end: 20070821
  2. SEROQUEL [Suspect]
     Indication: IMPULSIVE BEHAVIOUR
     Dosage: 25-550 MG
     Route: 048
     Dates: start: 20030710, end: 20070821
  3. ABILIFY [Concomitant]
  4. ABILIFY [Concomitant]
     Dosage: 10 MG Q AM, 20 MG EVERY NIGHT
     Route: 048
  5. LEXAPRO [Concomitant]
     Route: 048
  6. CYMBALTA [Concomitant]
     Route: 048
  7. HYDROXYZINE PAMOATE [Concomitant]
     Dosage: 25 MG,TID, 50-100 MG AS NEEDED
     Route: 048
  8. VICODIN [Concomitant]
     Indication: PAIN
     Dosage: STRENGTH-5/500, Q 4 HRS PRN
     Route: 048
  9. TYLENOL (CAPLET) [Concomitant]
     Indication: PYREXIA
     Dosage: 650 MG EVERY 4 HRS PRN
     Route: 048
  10. TYLENOL (CAPLET) [Concomitant]
     Indication: PAIN
     Dosage: 650 MG EVERY 4 HRS PRN
     Route: 048
  11. TRAZODONE [Concomitant]
  12. DEPAKOTE [Concomitant]
     Dosage: 250 MG BID,250 MG TID, 500 MG TID, 500 MG IN MORNING AND 1000 MG AT BED TIME
     Route: 048
  13. MIRTAZAPINE [Concomitant]
     Dosage: 15-45 MG
     Route: 048
  14. PERCOCET [Concomitant]
     Indication: PAIN
     Dosage: 5/325 1-2 TABLET EVERY 6 HRS, EVERY 4 HRS PRN
     Route: 048
  15. WELLBUTRIN XL [Concomitant]
     Dosage: 300MG DISPENSED
     Route: 048
  16. NAPROXEN [Concomitant]
     Indication: HEADACHE
     Dosage: 500 MG BID, 500 MG PRN
     Route: 048
  17. AMBIEN [Concomitant]
     Indication: INSOMNIA
     Dosage: 5 MG AT BED TIME PRN
     Route: 048
  18. BUSPIRONE HCL [Concomitant]
     Route: 048

REACTIONS (1)
  - PANCREATITIS [None]
